FAERS Safety Report 5916328-X (Version None)
Quarter: 2008Q4

REPORT INFORMATION
  Report Type: 
  Country: None (occurrence: None)
  Receive Date: 20081013
  Receipt Date: 20081008
  Transmission Date: 20090506
  Serious: Yes (Death)
  Sender: FDA-Public Use
  Company Number: PHHY2008BR12244

PATIENT
  Sex: Male
  Weight: 16.5 kg

DRUGS (9)
  1. SANDIMMUNE [Suspect]
     Indication: PROPHYLAXIS AGAINST GRAFT VERSUS HOST DISEASE
     Dosage: 30 MG, Q12H
     Route: 042
     Dates: start: 20080418, end: 20080421
  2. ONDANSETRON [Concomitant]
  3. ACYCLOVIR [Concomitant]
  4. URSODIOL [Concomitant]
  5. IMMUNOGLOBULINS [Concomitant]
  6. GRANULOKINE [Concomitant]
  7. MEROPENEM [Concomitant]
  8. CANCIDAS [Concomitant]
  9. METRONIDAZOLE [Concomitant]

REACTIONS (6)
  - AGITATION [None]
  - CONFUSIONAL STATE [None]
  - DEPRESSED LEVEL OF CONSCIOUSNESS [None]
  - DISORIENTATION [None]
  - IRRITABILITY [None]
  - RESPIRATORY DISORDER [None]
